FAERS Safety Report 8027037-8 (Version None)
Quarter: 2012Q1

REPORT INFORMATION
  Report Type: 
  Country: None (occurrence: None)
  Receive Date: 20120106
  Receipt Date: 20120103
  Transmission Date: 20120608
  Serious: Yes (Other)
  Sender: FDA-Public Use
  Company Number: FR-PFIZER INC-2011213421

PATIENT
  Age: 76 Year
  Sex: Male
  Weight: 69 kg

DRUGS (6)
  1. BISOPROLOL [Concomitant]
  2. LEVOTHYROXINE SODIUM [Concomitant]
  3. AMLODIPINE BESYLATE [Concomitant]
     Dosage: 10 MG, 1 DF AT NOON
  4. EZETIMIBE/SIMVASTATIN [Concomitant]
  5. LYRICA [Suspect]
     Indication: NEURALGIA
     Dosage: 75 MG, 1X/DAY
     Dates: start: 20110705, end: 20110707
  6. LYRICA [Suspect]
     Indication: PAIN

REACTIONS (3)
  - SKIN EXFOLIATION [None]
  - HYPERSENSITIVITY [None]
  - PRURITUS [None]
